FAERS Safety Report 6100572-5 (Version None)
Quarter: 2009Q1

REPORT INFORMATION
  Report Type: 
  Country: None (occurrence: None)
  Receive Date: 20090227
  Receipt Date: 20090227
  Transmission Date: 20090719
  Serious: Yes (Other)
  Sender: FDA-Public Use
  Company Number: None

PATIENT
  Age: 41 Year
  Sex: Female
  Weight: 56.6996 kg

DRUGS (3)
  1. METROGEL-VAGINAL [Suspect]
     Indication: FUNGAL INFECTION
     Dosage: 1 SUPPOSITORY A NIGHT 5 NIGHTS VAG
     Route: 067
     Dates: start: 20040912, end: 20040917
  2. METROGEL-VAGINAL [Suspect]
     Indication: FUNGAL INFECTION
     Dosage: 1 SUPPOSITORY A NIGHT 5 NIGHTS VAG
     Route: 067
     Dates: start: 20040917, end: 20040917
  3. D+C TO REMOVE IUP [Concomitant]

REACTIONS (4)
  - ABORTION SPONTANEOUS [None]
  - DRUG EXPOSURE DURING PREGNANCY [None]
  - PREGNANCY [None]
  - VAGINAL DISCHARGE [None]
